FAERS Safety Report 11491961 (Version 4)
Quarter: 2017Q4

REPORT INFORMATION
  Report Type: Spontaneous
  Country: IT (occurrence: IT)
  Receive Date: 20150910
  Receipt Date: 20171025
  Transmission Date: 20180320
  Serious: Yes (Life-Threatening)
  Sender: FDA-Public Use
  Company Number: ALCN2015IT005477

PATIENT
  Age: 83 Year
  Sex: Female

DRUGS (9)
  1. CUSIMOLOL [Suspect]
     Active Substance: TIMOLOL MALEATE
     Indication: PREMEDICATION
     Dosage: 2 GTT, UNK
     Route: 047
     Dates: start: 20150310, end: 20150310
  2. IOPIDINE [Concomitant]
     Active Substance: APRACLONIDINE HYDROCHLORIDE
     Indication: PREMEDICATION
     Dosage: 2 GTT, QD
     Route: 047
     Dates: start: 20150310, end: 20150310
  3. CLENIL COMPOSITUM [Concomitant]
     Indication: ASTHMA
     Dosage: 1 DF, UNK
     Route: 055
  4. BENOXINATO CLORUR [Concomitant]
     Indication: PREMEDICATION
     Dosage: 2 GTT, QD
     Route: 047
     Dates: start: 20150310, end: 20150310
  5. CARDIOASPIRIN [Concomitant]
     Active Substance: ASPIRIN
     Indication: PRODUCT USED FOR UNKNOWN INDICATION
     Dosage: 1 DF, UNK
     Route: 048
  6. OLPRESS [Concomitant]
     Active Substance: OLMESARTAN MEDOXOMIL
     Indication: HYPERTENSION
     Dosage: 1 DF, UNK
     Route: 048
  7. PHENYLEPHRINE HYDROCHLORIDE W/TROPICAMIDE [Concomitant]
     Active Substance: PHENYLEPHRINE HYDROCHLORIDE\TROPICAMIDE
     Indication: PREMEDICATION
     Dosage: 2 GTT, QD
     Route: 047
     Dates: start: 20150310, end: 20150310
  8. ELOPRAM [Concomitant]
     Active Substance: CITALOPRAM HYDROBROMIDE
     Indication: PRODUCT USED FOR UNKNOWN INDICATION
     Dosage: 10 GTT, UNK
     Route: 048
  9. PILOCARPINA [Suspect]
     Active Substance: PILOCARPINE HYDROCHLORIDE
     Indication: PREMEDICATION
     Dosage: 6 GTT, UNK
     Route: 047
     Dates: start: 20150310, end: 20150310

REACTIONS (4)
  - Respiratory arrest [Recovered/Resolved]
  - Bronchospasm [Recovered/Resolved]
  - Medication error [Recovered/Resolved]
  - Dyspnoea [Recovered/Resolved]

NARRATIVE: CASE EVENT DATE: 20150310
